FAERS Safety Report 18104210 (Version 1)
Quarter: 2020Q3

REPORT INFORMATION
  Report Type: Spontaneous
  Country: US (occurrence: US)
  Receive Date: 20200803
  Receipt Date: 20200803
  Transmission Date: 20201103
  Serious: Yes (Hospitalization, Other)
  Sender: FDA-Public Use
  Company Number: US-ENDO PHARMACEUTICALS INC-2020-005284

PATIENT
  Age: 25 Year
  Sex: Male

DRUGS (1)
  1. AVEED [Suspect]
     Active Substance: TESTOSTERONE UNDECANOATE
     Indication: MUSCLE BUILDING THERAPY
     Dosage: UNK UNKNOWN, UNKNOWN
     Route: 030

REACTIONS (7)
  - Performance enhancing product use [Unknown]
  - Off label use [Unknown]
  - Myocardial infarction [Unknown]
  - Drug abuse [Unknown]
  - Renal embolism [Unknown]
  - Renal infarct [Unknown]
  - Overdose [Unknown]
